FAERS Safety Report 8146699-8 (Version None)
Quarter: 2012Q1

REPORT INFORMATION
  Report Type: 
  Country: None (occurrence: None)
  Receive Date: 20120217
  Receipt Date: 20110927
  Transmission Date: 20120608
  Serious: No
  Sender: FDA-Public Use
  Company Number: US-ABBOTT-11P-163-0858028-00

PATIENT
  Sex: Male
  Weight: 99.88 kg

DRUGS (2)
  1. SIMCOR [Suspect]
     Indication: BLOOD TRIGLYCERIDES INCREASED
     Dosage: 1000/40 MG AT NIGHT
     Dates: start: 20110901
  2. ATENOLOL [Concomitant]
     Indication: PRODUCT USED FOR UNKNOWN INDICATION

REACTIONS (3)
  - FLUSHING [None]
  - PARAESTHESIA [None]
  - PRURITUS [None]
